FAERS Safety Report 6846106-9 (Version None)
Quarter: 2010Q3

REPORT INFORMATION
  Report Type: 
  Country: None (occurrence: None)
  Receive Date: 20100715
  Receipt Date: 20071026
  Transmission Date: 20110219
  Serious: Yes (Other)
  Sender: FDA-Public Use
  Company Number: US-PFIZER INC-2007074105

PATIENT
  Sex: Female
  Weight: 80.7 kg

DRUGS (8)
  1. CHANTIX [Suspect]
     Indication: SMOKING CESSATION THERAPY
     Dates: start: 20070825, end: 20070830
  2. LEVOXYL [Concomitant]
  3. SIMVASTATIN [Concomitant]
  4. SERTRALINE HCL [Concomitant]
  5. POTASSIUM CHLORIDE [Concomitant]
  6. NEXIUM [Concomitant]
  7. CLARITIN [Concomitant]
  8. ACETYLSALICYLIC ACID [Concomitant]

REACTIONS (9)
  - ABNORMAL DREAMS [None]
  - CONFUSIONAL STATE [None]
  - CONSTIPATION [None]
  - DISTURBANCE IN ATTENTION [None]
  - HEADACHE [None]
  - NAUSEA [None]
  - SPEECH DISORDER [None]
  - VISUAL IMPAIRMENT [None]
  - VOMITING [None]
